FAERS Safety Report 17084376 (Version 2)
Quarter: 2020Q1

REPORT INFORMATION
  Report Type: Report from Study
  Country: US (occurrence: US)
  Receive Date: 20191127
  Receipt Date: 20200117
  Transmission Date: 20200409
  Serious: No
  Sender: FDA-Public Use
  Company Number: NVSC2019US049985

PATIENT
  Age: 50 Year
  Sex: Female

DRUGS (2)
  1. COSENTYX [Suspect]
     Active Substance: SECUKINUMAB
     Route: 058
  2. COSENTYX [Suspect]
     Active Substance: SECUKINUMAB
     Indication: PSORIASIS
     Dosage: 300 MG, QMO
     Route: 058

REACTIONS (6)
  - Psoriasis [Unknown]
  - Alopecia [Unknown]
  - Pain [Unknown]
  - Skin burning sensation [Unknown]
  - Pruritus [Unknown]
  - Product dose omission [Unknown]

NARRATIVE: CASE EVENT DATE: 20200114
